FAERS Safety Report 4358112-7 (Version None)
Quarter: 2004Q2

REPORT INFORMATION
  Report Type: 
  Country: None (occurrence: None)
  Receive Date: 20040511
  Receipt Date: 20040429
  Transmission Date: 20050107
  Serious: Yes (Other)
  Sender: FDA-Public Use
  Company Number: BE-JNJFOC-20040406289

PATIENT
  Age: 30 Year
  Sex: Female

DRUGS (1)
  1. RISPERDAL [Suspect]
     Indication: DRUG USE FOR UNKNOWN INDICATION
     Dosage: 2 MG, IN 1 DAY, ORAL
     Route: 048

REACTIONS (3)
  - BLOOD PROLACTIN INCREASED [None]
  - LEUKOPENIA [None]
  - NEUTROPHIL COUNT DECREASED [None]
